FAERS Safety Report 18918880 (Version 1)
Quarter: 2021Q1

REPORT INFORMATION
  Report Type: Spontaneous
  Country: MG (occurrence: MG)
  Receive Date: 20210220
  Receipt Date: 20210220
  Transmission Date: 20210420
  Serious: Yes (Hospitalization, Disabling, Other)
  Sender: FDA-Public Use
  Company Number: MG-MICRO LABS LIMITED-ML2021-00487

PATIENT
  Age: 7 Year
  Sex: Male
  Weight: 40 kg

DRUGS (2)
  1. BENZATHINE PENICILLIN [Suspect]
     Active Substance: PENICILLIN G BENZATHINE
     Route: 030
     Dates: start: 20180915
  2. DICLOFENAC [Suspect]
     Active Substance: DICLOFENAC
     Route: 030
     Dates: start: 20180915

REACTIONS (5)
  - Intentional product misuse [Unknown]
  - Peripheral ischaemia [None]
  - Medication error [Unknown]
  - Embolia cutis medicamentosa [Recovering/Resolving]
  - Compartment syndrome [Unknown]
